FAERS Safety Report 14298296 (Version 5)
Quarter: 2018Q4

REPORT INFORMATION
  Report Type: Spontaneous
  Country: FR (occurrence: FR)
  Receive Date: 20171218
  Receipt Date: 20181116
  Transmission Date: 20190204
  Serious: Yes (Life-Threatening, Hospitalization, Other)
  Sender: FDA-Public Use
  Company Number: PHHY2017FR183851

PATIENT
  Age: 76 Year
  Sex: Male
  Weight: 59 kg

DRUGS (7)
  1. KREDEX [Suspect]
     Active Substance: CARVEDILOL
     Indication: CARDIAC FAILURE
     Dosage: 12.5 MG, QD
     Route: 048
  2. KREDEX [Suspect]
     Active Substance: CARVEDILOL
     Dosage: 2 DF, QD
     Route: 048
  3. VALSARTAN. [Suspect]
     Active Substance: VALSARTAN
     Indication: PRODUCT USED FOR UNKNOWN INDICATION
     Dosage: UNK
     Route: 065
  4. ALLOPURINOL. [Suspect]
     Active Substance: ALLOPURINOL
     Indication: HYPERURICAEMIA
     Dosage: 200 MG, QD
     Route: 065
  5. ENTRESTO [Suspect]
     Active Substance: SACUBITRIL\VALSARTAN
     Indication: LEFT VENTRICULAR FAILURE
     Dosage: 200 MG, QD
     Route: 048
     Dates: start: 20171124, end: 20171129
  6. ENTRESTO [Suspect]
     Active Substance: SACUBITRIL\VALSARTAN
     Dosage: 100 MG, BID
     Route: 048
     Dates: start: 20171126
  7. FENOFIBRATE. [Suspect]
     Active Substance: FENOFIBRATE
     Indication: PRODUCT USED FOR UNKNOWN INDICATION
     Dosage: 100 MG, QD
     Route: 065

REACTIONS (13)
  - Abdominal pain [Unknown]
  - Cardiac failure [Unknown]
  - Hepatocellular injury [Unknown]
  - Thrombocytopenia [Unknown]
  - Blood pressure decreased [Unknown]
  - Cardiogenic shock [Recovered/Resolved]
  - Hyperkalaemia [Unknown]
  - Fatigue [Unknown]
  - Acute respiratory distress syndrome [Unknown]
  - Multiple organ dysfunction syndrome [Not Recovered/Not Resolved]
  - Dyspnoea [Unknown]
  - Bradycardia [Unknown]
  - Renal failure [Unknown]

NARRATIVE: CASE EVENT DATE: 201712
